FAERS Safety Report 7269353-3 (Version None)
Quarter: 2011Q1

REPORT INFORMATION
  Report Type: 
  Country: None (occurrence: None)
  Receive Date: 20110125
  Receipt Date: 20110110
  Transmission Date: 20110831
  Serious: Yes (Other)
  Sender: FDA-Public Use
  Company Number: 2011AT000022

PATIENT
  Age: 48 Year
  Sex: Female

DRUGS (1)
  1. ALPROSTADIL [Suspect]
     Indication: ARTERIOSCLEROSIS
     Dosage: 40 UG;1X;IV
     Route: 042
     Dates: start: 20101019, end: 20101019

REACTIONS (2)
  - ANGINA PECTORIS [None]
  - OFF LABEL USE [None]
